FAERS Safety Report 5760603-9 (Version None)
Quarter: 2008Q2

REPORT INFORMATION
  Report Type: 
  Country: None (occurrence: None)
  Receive Date: 20080602
  Receipt Date: 20080511
  Transmission Date: 20081010
  Serious: Yes (Other)
  Sender: FDA-Public Use
  Company Number: 1-16129024

PATIENT
  Age: 75 Year
  Sex: Female
  Weight: 80.7403 kg

DRUGS (3)
  1. FENTANYL [Suspect]
     Indication: BACK PAIN
     Dosage: ONE PATCH EVERY 72 HRS, TRANSDERMAL
     Route: 062
     Dates: start: 20080201, end: 20080510
  2. NYSTATIN [Concomitant]
  3. NEXIUM [Concomitant]

REACTIONS (12)
  - ABDOMINAL DISTENSION [None]
  - ASTHENIA [None]
  - BLOOD POTASSIUM DECREASED [None]
  - CONFUSIONAL STATE [None]
  - DISORIENTATION [None]
  - DRY MOUTH [None]
  - MALAISE [None]
  - SLEEP TALKING [None]
  - SOMNOLENCE [None]
  - TREMOR [None]
  - URINARY TRACT INFECTION [None]
  - WEIGHT DECREASED [None]
